FAERS Safety Report 6526164-1 (Version None)
Quarter: 2009Q4

REPORT INFORMATION
  Report Type: 
  Country: None (occurrence: None)
  Receive Date: 20091228
  Receipt Date: 20091217
  Transmission Date: 20100525
  Serious: Yes (Other)
  Sender: FDA-Public Use
  Company Number: 234804J09USA

PATIENT
  Age: 53 Year
  Sex: Female

DRUGS (4)
  1. REBIF [Suspect]
     Indication: MULTIPLE SCLEROSIS
     Dosage: 44 MCG, 3 IN 1 WEEKS, SUBCUTANEOUS
     Route: 058
     Dates: start: 20031217
  2. SOLU-MEDROL [Concomitant]
  3. PREVACID [Concomitant]
  4. PRILOSEC [Concomitant]

REACTIONS (6)
  - ASTIGMATISM [None]
  - BENIGN EAR NEOPLASM [None]
  - CATARACT [None]
  - HYPOAESTHESIA [None]
  - KERATOCONJUNCTIVITIS SICCA [None]
  - LENS DISORDER [None]
